FAERS Safety Report 11583430 (Version 2)
Quarter: 2015Q4

REPORT INFORMATION
  Report Type: Report from Study
  Country: US (occurrence: US)
  Receive Date: 20151001
  Receipt Date: 20151007
  Transmission Date: 20160304
  Serious: Yes (Hospitalization, Other)
  Sender: FDA-Public Use
  Company Number: US-BAYER-2015-404287

PATIENT
  Age: 74 Year
  Sex: Male

DRUGS (1)
  1. STIVARGA [Suspect]
     Active Substance: REGORAFENIB
     Indication: COLON CANCER
     Dosage: 160MG, DAILY
     Route: 048
     Dates: start: 20150813

REACTIONS (5)
  - Dehydration [None]
  - Balance disorder [None]
  - Liver function test abnormal [None]
  - Colon cancer [None]
  - Dysphonia [None]

NARRATIVE: CASE EVENT DATE: 201508
